FAERS Safety Report 22736192 (Version 3)
Quarter: 2024Q3

REPORT INFORMATION
  Report Type: Report from Study
  Country: TH (occurrence: TH)
  Receive Date: 20230721
  Receipt Date: 20240809
  Transmission Date: 20241017
  Serious: Yes (Other)
  Sender: NOVARTIS
  Company Number: TH-002147023-NVSC2023TH124163

PATIENT
  Sex: Female

DRUGS (2)
  1. KISQALI [Suspect]
     Active Substance: RIBOCICLIB
     Indication: Breast cancer metastatic
     Dosage: 3 DOSAGE FORM, QD
     Route: 048
  2. KISQALI [Suspect]
     Active Substance: RIBOCICLIB
     Dosage: 2 DOSAGE FORM, QD (200 MG, ONCE DAILY AFTER BREAKFAST)
     Route: 048

REACTIONS (12)
  - Carcinoembryonic antigen increased [Unknown]
  - Head discomfort [Recovering/Resolving]
  - Laboratory test abnormal [Unknown]
  - Nasopharyngitis [Unknown]
  - Fatigue [Unknown]
  - Dizziness [Unknown]
  - White blood cell count decreased [Unknown]
  - Nausea [Unknown]
  - Vomiting [Unknown]
  - Drug intolerance [Recovering/Resolving]
  - Drug resistance [Unknown]
  - Inappropriate schedule of product administration [Unknown]
